FAERS Safety Report 9055348 (Version 2)
Quarter: 2013Q2

REPORT INFORMATION
  Report Type: Report from Study
  Country: US (occurrence: US)
  Receive Date: 20130206
  Receipt Date: 20130614
  Transmission Date: 20140414
  Serious: Yes (Other)
  Sender: FDA-Public Use
  Company Number: US-ROCHE-1187109

PATIENT
  Age: 79 Year
  Sex: Female

DRUGS (2)
  1. LUCENTIS [Suspect]
     Indication: AGE-RELATED MACULAR DEGENERATION
     Route: 050
     Dates: start: 200701, end: 201210
  2. EYLEA [Concomitant]
     Indication: AGE-RELATED MACULAR DEGENERATION
     Route: 042
     Dates: start: 201210

REACTIONS (4)
  - Cataract [Unknown]
  - Vision blurred [Unknown]
  - Blindness [Unknown]
  - Cataract operation [Unknown]
